FAERS Safety Report 4825208-2 (Version None)
Quarter: 2005Q4

REPORT INFORMATION
  Report Type: 
  Country: None (occurrence: None)
  Receive Date: 20051109
  Receipt Date: 20051013
  Transmission Date: 20060501
  Serious: Yes (Other)
  Sender: FDA-Public Use
  Company Number: 2005131054

PATIENT
  Age: 76 Year
  Sex: Female
  Weight: 64.8 kg

DRUGS (5)
  1. GABAPENTIN [Suspect]
     Indication: POST HERPETIC NEURALGIA
     Dosage: 900 MG (300 MG, 3 IN 1 D), ORAL
     Route: 048
     Dates: start: 20050131, end: 20050202
  2. LYRICA [Suspect]
     Indication: POST HERPETIC NEURALGIA
     Dosage: 150 MG, ORAL
     Route: 048
     Dates: start: 20050226, end: 20050914
  3. DITROPAN [Concomitant]
  4. TRAMADOL HCL [Concomitant]
  5. LORMETAZEPAM (LORMETAZEPAM) [Concomitant]

REACTIONS (12)
  - ANXIETY [None]
  - BLOOD CHOLESTEROL INCREASED [None]
  - BLOOD UREA INCREASED [None]
  - DISCOMFORT [None]
  - DRUG INTOLERANCE [None]
  - FATIGUE [None]
  - GAIT DISTURBANCE [None]
  - OEDEMA PERIPHERAL [None]
  - OSTEOARTHRITIS [None]
  - PAIN [None]
  - SOMNOLENCE [None]
  - WEIGHT INCREASED [None]
